FAERS Safety Report 18640438 (Version 2)
Quarter: 2021Q1

REPORT INFORMATION
  Report Type: Spontaneous
  Country: JP (occurrence: JP)
  Receive Date: 20201221
  Receipt Date: 20210330
  Transmission Date: 20210419
  Serious: Yes (Death, Other)
  Sender: FDA-Public Use
  Company Number: JP-SAKK-2020SA362686AA

PATIENT
  Age: 80 Year
  Sex: Female

DRUGS (1)
  1. KEVZARA [Suspect]
     Active Substance: SARILUMAB
     Indication: RHEUMATOID ARTHRITIS
     Dosage: 150 MG, 1X
     Route: 058
     Dates: end: 20201120

REACTIONS (5)
  - Dyspnoea [Fatal]
  - Pyrexia [Fatal]
  - Cough [Fatal]
  - Interstitial lung disease [Fatal]
  - Tachypnoea [Fatal]

NARRATIVE: CASE EVENT DATE: 2020
